FAERS Safety Report 7709906-9 (Version None)
Quarter: 2011Q3

REPORT INFORMATION
  Report Type: 
  Country: None (occurrence: None)
  Receive Date: 20110819
  Receipt Date: 20110804
  Transmission Date: 20111222
  Serious: Yes (Hospitalization)
  Sender: FDA-Public Use
  Company Number: GER/UKI/09/0000958

PATIENT
  Age: 20 Year
  Sex: Male

DRUGS (5)
  1. OMEPRAZOLE [Suspect]
     Indication: GASTROOESOPHAGEAL REFLUX DISEASE
  2. ANTIBIOTICS [Concomitant]
  3. AZITHROMYCIN [Suspect]
     Indication: PRODUCT USED FOR UNKNOWN INDICATION
  4. CIPROFLOXACIN [Suspect]
     Indication: PRODUCT USED FOR UNKNOWN INDICATION
     Dosage: ORAL
     Route: 048
  5. CORTICOSTEROIDS [Concomitant]

REACTIONS (7)
  - DEHYDRATION [None]
  - CLOSTRIDIUM DIFFICILE COLITIS [None]
  - APPENDICITIS [None]
  - CONDITION AGGRAVATED [None]
  - HYPOTENSION [None]
  - LUNG DISORDER [None]
  - PSEUDOMEMBRANOUS COLITIS [None]
